FAERS Safety Report 7611143-3 (Version None)
Quarter: 2011Q3

REPORT INFORMATION
  Report Type: 
  Country: None (occurrence: None)
  Receive Date: 20110715
  Receipt Date: 20110628
  Transmission Date: 20111222
  Serious: No
  Sender: FDA-Public Use
  Company Number: US-B.I. PHARMACEUTICALS,INC./RIDGEFIELD-2011-BP-16477BP

PATIENT
  Age: 73 Year
  Sex: Female

DRUGS (2)
  1. MICARDIS [Suspect]
     Indication: CARDIAC DISORDER
     Dosage: 40 MG
     Route: 048
     Dates: start: 20110301
  2. COREG [Concomitant]

REACTIONS (2)
  - BACK PAIN [None]
  - DYSPHONIA [None]
